FAERS Safety Report 14393539 (Version 1)
Quarter: 2018Q1

REPORT INFORMATION
  Report Type: Spontaneous
  Country: US (occurrence: US)
  Receive Date: 20180115
  Receipt Date: 20180115
  Transmission Date: 20180509
  Serious: Yes (Other)
  Sender: FDA-Public Use
  Company Number: None

PATIENT
  Age: 63 Year
  Sex: Female
  Weight: 65.07 kg

DRUGS (6)
  1. PROBIOTIC [Concomitant]
     Active Substance: PROBIOTICS NOS
  2. COENZYME Q10 [Concomitant]
     Active Substance: UBIDECARENONE
  3. FISH OIL [Concomitant]
     Active Substance: FISH OIL
  4. FLAX SEED [Concomitant]
     Active Substance: FLAX SEED
  5. TEA [Concomitant]
     Active Substance: TEA LEAF
  6. IBRANCE [Suspect]
     Active Substance: PALBOCICLIB
     Indication: BREAST CANCER
     Route: 048
     Dates: start: 20171212

REACTIONS (2)
  - Constipation [None]
  - Cognitive disorder [None]
